FAERS Safety Report 17281700 (Version 1)
Quarter: 2020Q1

REPORT INFORMATION
  Report Type: Spontaneous
  Country: US (occurrence: US)
  Receive Date: 20191227
  Receipt Date: 20191227
  Transmission Date: 20200409
  Serious: Yes (Hospitalization, Disabling)
  Sender: FDA-Public Use
  Company Number: None

PATIENT
  Age: 41 Year
  Sex: Female
  Weight: 81.65 kg

DRUGS (7)
  1. MELOXICAM. [Concomitant]
     Active Substance: MELOXICAM
  2. GABAPENTIN. [Suspect]
     Active Substance: GABAPENTIN
     Indication: BRACHIAL PLEXUS INJURY
     Dosage: ?          QUANTITY:1.5 DF DOSAGE FORM;?
     Route: 048
     Dates: start: 20151120, end: 20170704
  3. PREDNISONE. [Concomitant]
     Active Substance: PREDNISONE
  4. ALBUTEROL. [Concomitant]
     Active Substance: ALBUTEROL
  5. SERTALINE [Concomitant]
     Active Substance: SERTRALINE HYDROCHLORIDE
  6. TRAMADOL. [Concomitant]
     Active Substance: TRAMADOL
  7. DAPSONE. [Concomitant]
     Active Substance: DAPSONE

REACTIONS (1)
  - Chronic respiratory disease [None]

NARRATIVE: CASE EVENT DATE: 20181228
